FAERS Safety Report 6230465-4 (Version None)
Quarter: 2009Q2

REPORT INFORMATION
  Report Type: 
  Country: None (occurrence: None)
  Receive Date: 20090611
  Receipt Date: 20090218
  Transmission Date: 20091009
  Serious: Yes (Other)
  Sender: FDA-Public Use
  Company Number: 2009AP000576

PATIENT
  Age: 55 Year
  Sex: Male

DRUGS (8)
  1. CITALOPRAM HYDROBROMIDE [Suspect]
     Indication: PANIC ATTACK
     Dosage: 20MG; QD; 40 MG; QD; 60 MG; QD.
  2. SULFAMETHOXAZOLE AND TRIMETHOPRIM [Suspect]
     Dosage: 1 DF; BID;
  3. RIFAMPIN [Suspect]
     Indication: OSTEOMYELITIS
     Dosage: 600 MG; BID;
  4. BUPROPION [Concomitant]
  5. LORAZEPAM [Concomitant]
  6. CLONAZEPAM [Concomitant]
  7. CLINDAMYCIN [Concomitant]
  8. VANCOMYCIN [Concomitant]

REACTIONS (5)
  - ABDOMINAL DISCOMFORT [None]
  - CRYING [None]
  - DRUG INEFFECTIVE [None]
  - DRUG INTERACTION [None]
  - PANIC ATTACK [None]
